FAERS Safety Report 11825786 (Version 1)
Quarter: 2015Q4

REPORT INFORMATION
  Report Type: Spontaneous
  Country: US (occurrence: US)
  Receive Date: 20151211
  Receipt Date: 20151211
  Transmission Date: 20160305
  Serious: No
  Sender: FDA-Public Use
  Company Number: US-ASTRAZENECA-2015SF23118

PATIENT
  Age: 5 Year

DRUGS (1)
  1. PULMICORT TURBUHALER [Suspect]
     Active Substance: BUDESONIDE
     Dosage: 1 PUFF, TWICE A DAY
     Route: 055
     Dates: start: 20151104

REACTIONS (2)
  - Device failure [Unknown]
  - Cough [Unknown]
